FAERS Safety Report 6602593-2 (Version None)
Quarter: 2010Q1

REPORT INFORMATION
  Report Type: 
  Country: None (occurrence: None)
  Receive Date: 20100225
  Receipt Date: 20100215
  Transmission Date: 20100710
  Serious: Yes (Other)
  Sender: FDA-Public Use
  Company Number: US-MERCK-1002USA02187

PATIENT
  Age: 78 Year
  Sex: Female

DRUGS (5)
  1. ZOCOR [Suspect]
     Indication: BLOOD CHOLESTEROL
     Route: 048
     Dates: start: 20080101, end: 20081001
  2. XANAX [Concomitant]
     Route: 065
  3. AMBIEN [Concomitant]
     Route: 065
  4. ZYPREXA [Concomitant]
     Route: 065
  5. SERTRALINE HYDROCHLORIDE [Concomitant]
     Route: 065

REACTIONS (2)
  - CARDIAC DISORDER [None]
  - DYSPEPSIA [None]
